FAERS Safety Report 15075132 (Version 1)
Quarter: 2018Q2

REPORT INFORMATION
  Report Type: Spontaneous
  Country: US (occurrence: US)
  Receive Date: 20180627
  Receipt Date: 20180627
  Transmission Date: 20180711
  Serious: Yes (Other)
  Sender: FDA-Public Use
  Company Number: US-SAOL THERAPEUTICS-2017SAO03554

PATIENT
  Age: 55 Year
  Sex: Male
  Weight: 63.49 kg

DRUGS (1)
  1. COMPOUNDED BACLOFEN [Suspect]
     Active Substance: BACLOFEN
     Dosage: 85 ?G, \DAY
     Route: 037

REACTIONS (2)
  - Complication associated with device [Recovered/Resolved]
  - Cerebrospinal fluid leakage [Recovered/Resolved]

NARRATIVE: CASE EVENT DATE: 201712
